FAERS Safety Report 19274697 (Version 2)
Quarter: 2021Q2

REPORT INFORMATION
  Report Type: Spontaneous
  Country: CN (occurrence: CN)
  Receive Date: 20210519
  Receipt Date: 20210602
  Transmission Date: 20210717
  Serious: Yes (Other)
  Sender: FDA-Public Use
  Company Number: CN-SA-2021SA158769

PATIENT
  Age: 55 Year
  Sex: Female

DRUGS (1)
  1. COAPROVEL [Suspect]
     Active Substance: HYDROCHLOROTHIAZIDE\IRBESARTAN
     Dosage: 1 DF, QD  1 TABLET/QD, ON AN EMPTY STOMACH IN THE MORNING

REACTIONS (3)
  - Cardiac discomfort [Recovered/Resolved]
  - Prescription drug used without a prescription [Unknown]
  - Menopausal symptoms [Recovered/Resolved]
